FAERS Safety Report 17142039 (Version 1)
Quarter: 2019Q4

REPORT INFORMATION
  Report Type: Spontaneous
  Country: US (occurrence: US)
  Receive Date: 20191211
  Receipt Date: 20191211
  Transmission Date: 20200122
  Serious: No
  Sender: FDA-Public Use
  Company Number: US-JNJFOC-20191115405

PATIENT
  Sex: Female
  Weight: 78.54 kg

DRUGS (3)
  1. SPRAVATO [Suspect]
     Active Substance: ESKETAMINE
     Indication: DEPRESSION
     Dates: start: 20191029
  2. CELEXA [Concomitant]
     Active Substance: CITALOPRAM HYDROBROMIDE
  3. SPRAVATO [Suspect]
     Active Substance: ESKETAMINE
     Dates: start: 20191105

REACTIONS (8)
  - Panic reaction [Unknown]
  - Dissociation [Unknown]
  - Sedation [Unknown]
  - Crying [Unknown]
  - Emotional disorder [Unknown]
  - Nausea [Unknown]
  - Affect lability [Unknown]
  - Adverse event [Unknown]

NARRATIVE: CASE EVENT DATE: 2019
